FAERS Safety Report 6899592-2 (Version None)
Quarter: 2010Q3

REPORT INFORMATION
  Report Type: 
  Country: None (occurrence: None)
  Receive Date: 20100729
  Receipt Date: 20100722
  Transmission Date: 20110219
  Serious: Yes (Hospitalization)
  Sender: FDA-Public Use
  Company Number: 103570

PATIENT
  Age: 53 Year
  Sex: Male

DRUGS (1)
  1. LABETALOL HCL [Suspect]
     Indication: HYPOTENSION

REACTIONS (9)
  - COMPARTMENT SYNDROME [None]
  - ECCHYMOSIS [None]
  - HAEMATOMA [None]
  - MUSCLE NECROSIS [None]
  - MUSCULAR WEAKNESS [None]
  - OEDEMA PERIPHERAL [None]
  - PAIN IN EXTREMITY [None]
  - PERONEAL NERVE PALSY [None]
  - PROCEDURAL PAIN [None]
